FAERS Safety Report 5404748-1 (Version None)
Quarter: 2007Q3

REPORT INFORMATION
  Report Type: 
  Country: None (occurrence: None)
  Receive Date: 20070801
  Receipt Date: 20070719
  Transmission Date: 20080115
  Serious: Yes (Other)
  Sender: FDA-Public Use
  Company Number: 2007327534

PATIENT
  Age: 63 Year
  Sex: Female
  Weight: 74.8 kg

DRUGS (4)
  1. BENADRYL [Suspect]
     Indication: RASH
     Dates: start: 20070101
  2. CHANTIX [Suspect]
     Indication: SMOKING CESSATION THERAPY
     Dates: start: 20070101, end: 20070701
  3. VITAMIN C (VITAMIN C) [Concomitant]
  4. CALCIUM (CALCIUM) [Concomitant]

REACTIONS (11)
  - BREAST PAIN [None]
  - CHAPPED LIPS [None]
  - DRUG HYPERSENSITIVITY [None]
  - ERYTHEMA [None]
  - LIP EXFOLIATION [None]
  - LIP SWELLING [None]
  - OEDEMA PERIPHERAL [None]
  - ORAL PAIN [None]
  - RASH [None]
  - SKIN EXFOLIATION [None]
  - STEVENS-JOHNSON SYNDROME [None]
